FAERS Safety Report 5010332-4 (Version None)
Quarter: 2006Q2

REPORT INFORMATION
  Report Type: 
  Country: None (occurrence: None)
  Receive Date: 20060404
  Receipt Date: 20051220
  Transmission Date: 20061013
  Serious: No
  Sender: FDA-Public Use
  Company Number: US200512003585

PATIENT
  Age: 46 Year
  Sex: Female

DRUGS (6)
  1. CYMBALTA [Suspect]
     Indication: FIBROMYALGIA
     Dosage: 60 MG, DAILY (1/D), ORAL
     Route: 048
     Dates: start: 20041101
  2. ELAVIL [Concomitant]
  3. ESTRATEST [Concomitant]
  4. SINGULAIR ^MERCK^ (MONTHELUKAST SODIUM) [Concomitant]
  5. VALTREX /UNK/ (VALACICLOVIR HYDROCHLORIDE) [Concomitant]
  6. VITAMIN B12 ^ALLERGAN^ (CYANOCOBALAMIN) [Concomitant]

REACTIONS (2)
  - DEPRESSION [None]
  - LETHARGY [None]
